FAERS Safety Report 19603075 (Version 3)
Quarter: 2021Q3

REPORT INFORMATION
  Report Type: Spontaneous
  Country: US (occurrence: US)
  Receive Date: 20210723
  Receipt Date: 20210901
  Transmission Date: 20211014
  Serious: Yes (Other)
  Sender: FDA-Public Use
  Company Number: US-ORGANON-O2107USA001642

PATIENT
  Age: 24 Year
  Sex: Female
  Weight: 53.97 kg

DRUGS (1)
  1. NEXPLANON [Suspect]
     Active Substance: ETONOGESTREL
     Indication: CONTRACEPTION
     Dosage: 1 ROD (68 MG), EVERY 3 YEARS, RIGHT ARM
     Dates: start: 20180316

REACTIONS (7)
  - Complication associated with device [Recovered/Resolved]
  - Device dislocation [Not Recovered/Not Resolved]
  - Incorrect product administration duration [Unknown]
  - No adverse event [Unknown]
  - Complication of device removal [Not Recovered/Not Resolved]
  - Complication of device removal [Not Recovered/Not Resolved]
  - Device issue [Not Recovered/Not Resolved]

NARRATIVE: CASE EVENT DATE: 20210316
